FAERS Safety Report 5264795-X (Version None)
Quarter: 2007Q1

REPORT INFORMATION
  Report Type: 
  Country: None (occurrence: None)
  Receive Date: 20070314
  Receipt Date: 20070227
  Transmission Date: 20070707
  Serious: Yes (Hospitalization)
  Sender: FDA-Public Use
  Company Number: US-AMGEN-STX211774

PATIENT
  Sex: Female

DRUGS (14)
  1. ENBREL [Suspect]
     Indication: RHEUMATOID ARTHRITIS
     Route: 058
     Dates: start: 20061011, end: 20061101
  2. METHOTREXATE [Concomitant]
     Route: 065
  3. PREDNISONE [Concomitant]
  4. PREDNISONE [Concomitant]
  5. CELEBREX [Concomitant]
  6. ESOMEPRAZOLE MAGNESIUM [Concomitant]
  7. ACTONEL [Concomitant]
  8. PERCOCET [Concomitant]
  9. MORPHINE [Concomitant]
  10. CALCIUM [Concomitant]
  11. CALCIUM [Concomitant]
  12. MULTI-VITAMINS [Concomitant]
  13. FOLIC ACID [Concomitant]
  14. IRON [Concomitant]

REACTIONS (7)
  - ANXIETY [None]
  - CARDIOVASCULAR DISORDER [None]
  - CHEST PAIN [None]
  - DIZZINESS [None]
  - HEADACHE [None]
  - LIMB DEFORMITY [None]
  - PANIC REACTION [None]
